FAERS Safety Report 4567799-5 (Version None)
Quarter: 2005Q1

REPORT INFORMATION
  Report Type: 
  Country: None (occurrence: None)
  Receive Date: 20050128
  Receipt Date: 20050114
  Transmission Date: 20050727
  Serious: No
  Sender: FDA-Public Use
  Company Number: 2005S1000179

PATIENT
  Age: 52 Year
  Sex: Female

DRUGS (1)
  1. CLOZAPINE [Suspect]
     Dosage: 100 MG QAM AND 100 MG QHS, ORAL
     Route: 048
     Dates: start: 20040401

REACTIONS (1)
  - APPENDICITIS PERFORATED [None]
